FAERS Safety Report 10954642 (Version 1)
Quarter: 2015Q1

REPORT INFORMATION
  Report Type: Spontaneous
  Country: US (occurrence: US)
  Receive Date: 20150325
  Receipt Date: 20150325
  Transmission Date: 20150721
  Serious: Yes (Hospitalization)
  Sender: FDA-Public Use
  Company Number: US-MALLINCKRODT-T201501605

PATIENT
  Sex: Male

DRUGS (1)
  1. H.P. ACTHAR [Suspect]
     Active Substance: CORTICOTROPIN
     Indication: DERMATOMYOSITIS
     Dosage: 80 U, 2 TIMES A WEEK
     Route: 058
     Dates: start: 20150209

REACTIONS (5)
  - Pneumothorax [Unknown]
  - Pallor [Unknown]
  - Asthenia [Unknown]
  - Staphylococcal sepsis [Unknown]
  - Pneumonia [Unknown]
